FAERS Safety Report 22978850 (Version 2)
Quarter: 2023Q4

REPORT INFORMATION
  Report Type: Spontaneous
  Country: NL (occurrence: NL)
  Receive Date: 20230925
  Receipt Date: 20231002
  Transmission Date: 20240110
  Serious: Yes (Life-Threatening, Hospitalization, Other)
  Sender: FDA-Public Use
  Company Number: None

PATIENT
  Age: 49 Year
  Sex: Female
  Weight: 54 kg

DRUGS (3)
  1. KEYTRUDA [Suspect]
     Active Substance: PEMBROLIZUMAB
     Indication: Lung neoplasm malignant
     Dosage: 200 MILLIGRAM, Q3W; SOLUTION FOR INFUSION, 25 MG/ML (MILLIGRAM PER MILLILITER), VIAL 4 ML
     Dates: start: 20230727, end: 20230827
  2. ALIMTA [Concomitant]
     Active Substance: PEMETREXED DISODIUM
     Dosage: 500 MILLIGRAM/SQ. METER, Q3W; SOLUTION FOR INFUSION, 25MG/ML
  3. CARBOPLATIN [Concomitant]
     Active Substance: CARBOPLATIN
     Dosage: ARE UNDER THE CURVE (AUC) 5, Q3W; SOLUTION FOR INFUSION, 10 MG/ML (MILLIGRAM PER MILLILITER)

REACTIONS (1)
  - Posterior reversible encephalopathy syndrome [Recovered/Resolved]

NARRATIVE: CASE EVENT DATE: 20230101
